FAERS Safety Report 11253836 (Version 2)
Quarter: 2015Q3

REPORT INFORMATION
  Report Type: Spontaneous
  Country: US (occurrence: US)
  Receive Date: 20150709
  Receipt Date: 20150731
  Transmission Date: 20151125
  Serious: Yes (Other)
  Sender: FDA-Public Use
  Company Number: US-ENDO PHARMACEUTICALS INC.-2015-001692

PATIENT
  Age: 33 Year
  Sex: Male
  Weight: 97.61 kg

DRUGS (3)
  1. XIAFLEX [Suspect]
     Active Substance: COLLAGENASE CLOSTRIDIUM HISTOLYTICUM
     Indication: PEYRONIE^S DISEASE
     Route: 026
     Dates: start: 20150605, end: 20150605
  2. XIAFLEX [Suspect]
     Active Substance: COLLAGENASE CLOSTRIDIUM HISTOLYTICUM
     Route: 026
     Dates: start: 20150602, end: 20150602
  3. URIBEL [Concomitant]
     Active Substance: HYOSCYAMINE SULFATE\METHENAMINE\METHYLENE BLUE\PHENYL SALICYLATE\SODIUM PHOSPHATE, MONOBASIC, MONOHYDRATE
     Indication: PRODUCT USED FOR UNKNOWN INDICATION
     Route: 048
     Dates: start: 20150608

REACTIONS (1)
  - Fracture of penis [Recovering/Resolving]

NARRATIVE: CASE EVENT DATE: 201506
